FAERS Safety Report 20437070 (Version 1)
Quarter: 2022Q1

REPORT INFORMATION
  Report Type: Spontaneous
  Country: US (occurrence: None)
  Receive Date: 20220204
  Receipt Date: 20220204
  Transmission Date: 20220423
  Serious: Yes (Other)
  Sender: FDA-Public Use
  Company Number: None

PATIENT
  Age: 79 Year
  Sex: Male
  Weight: 84 kg

DRUGS (7)
  1. CASIRIVIMAB\IMDEVIMAB [Suspect]
     Active Substance: CASIRIVIMAB\IMDEVIMAB
     Indication: COVID-19
     Route: 042
     Dates: start: 20211221, end: 20211221
  2. AZELASTINE [Concomitant]
     Active Substance: AZELASTINE
  3. POLYETHYLENE GLYCOL [Concomitant]
     Active Substance: POLYETHYLENE GLYCOL
  4. fluad influenza vaccine [Concomitant]
     Dates: start: 20211214, end: 20211214
  5. TAMSULOSIN [Concomitant]
     Active Substance: TAMSULOSIN
  6. ESOMEPRAZOLE [Concomitant]
     Active Substance: ESOMEPRAZOLE
  7. TRAZODONE [Concomitant]
     Active Substance: TRAZODONE HYDROCHLORIDE

REACTIONS (1)
  - Rash [None]

NARRATIVE: CASE EVENT DATE: 20211222
